FAERS Safety Report 6068961-5 (Version None)
Quarter: 2009Q1

REPORT INFORMATION
  Report Type: 
  Country: None (occurrence: None)
  Receive Date: 20090206
  Receipt Date: 20090129
  Transmission Date: 20090719
  Serious: Yes (Hospitalization)
  Sender: FDA-Public Use
  Company Number: PHHO2006US16507

PATIENT
  Sex: Female
  Weight: 101.8 kg

DRUGS (2)
  1. TASIGNA [Suspect]
     Indication: CHRONIC MYELOID LEUKAEMIA
     Dosage: 800 MG, QD
     Route: 048
     Dates: start: 20060104, end: 20070912
  2. AVANDIA [Suspect]
     Indication: DIABETES MELLITUS
     Dosage: 4 MG, QD
     Route: 048
     Dates: start: 20060911, end: 20061012

REACTIONS (18)
  - ATRIAL FIBRILLATION [None]
  - CARDIAC FAILURE CONGESTIVE [None]
  - CHEST PAIN [None]
  - CHEST X-RAY ABNORMAL [None]
  - CONCOMITANT DISEASE PROGRESSION [None]
  - CORONARY ARTERY BYPASS [None]
  - CORONARY ARTERY DISEASE [None]
  - CORONARY ARTERY RESTENOSIS [None]
  - DILATATION ATRIAL [None]
  - DYSPNOEA [None]
  - DYSPNOEA EXERTIONAL [None]
  - FLUID RETENTION [None]
  - HEART VALVE INCOMPETENCE [None]
  - INCISION SITE PAIN [None]
  - LEFT VENTRICULAR HYPERTROPHY [None]
  - PALPITATIONS [None]
  - PLEURAL EFFUSION [None]
  - PULMONARY CONGESTION [None]
